FAERS Safety Report 11333597 (Version 1)
Quarter: 2015Q3

REPORT INFORMATION
  Report Type: Spontaneous
  Country: US (occurrence: US)
  Receive Date: 20150803
  Receipt Date: 20150803
  Transmission Date: 20151125
  Serious: No
  Sender: FDA-Public Use
  Company Number: US-ELI_LILLY_AND_COMPANY-US200802004691

PATIENT
  Sex: Male
  Weight: 90.7 kg

DRUGS (7)
  1. ZYPREXA [Suspect]
     Active Substance: OLANZAPINE
     Indication: ANXIETY
     Dates: start: 1999, end: 2002
  2. REMERON [Concomitant]
     Active Substance: MIRTAZAPINE
     Dates: start: 2001
  3. GEODON [Concomitant]
     Active Substance: ZIPRASIDONE HYDROCHLORIDE\ZIPRASIDONE MESYLATE
     Dates: start: 200801, end: 200805
  4. PROZAC [Concomitant]
     Active Substance: FLUOXETINE HYDROCHLORIDE
     Dates: start: 2001
  5. RISPERDAL [Concomitant]
     Active Substance: RISPERIDONE
     Dates: start: 200805
  6. PAXIL [Concomitant]
     Active Substance: PAROXETINE HYDROCHLORIDE
  7. EFFEXOR [Concomitant]
     Active Substance: VENLAFAXINE HYDROCHLORIDE
     Dates: start: 2006

REACTIONS (4)
  - Diabetes mellitus [Not Recovered/Not Resolved]
  - Metabolic disorder [Unknown]
  - Blood glucose abnormal [Unknown]
  - Endocrine disorder [Unknown]

NARRATIVE: CASE EVENT DATE: 2005
